FAERS Safety Report 6073916-0 (Version None)
Quarter: 2009Q1

REPORT INFORMATION
  Report Type: 
  Country: None (occurrence: None)
  Receive Date: 20090209
  Receipt Date: 20090209
  Transmission Date: 20090719
  Serious: No
  Sender: FDA-Public Use
  Company Number: None

PATIENT
  Sex: Female
  Weight: 43.9989 kg

DRUGS (1)
  1. LUTERA LEV 0.1MG, ETHINYL WATSON PHARMACEUTICALS, [Suspect]
     Indication: CONTRACEPTION
     Dosage: 1 DAY PO
     Route: 048

REACTIONS (3)
  - DEPRESSION [None]
  - FEELING OF DESPAIR [None]
  - SUICIDAL IDEATION [None]
